FAERS Safety Report 7022526-7 (Version None)
Quarter: 2010Q3

REPORT INFORMATION
  Report Type: 
  Country: None (occurrence: None)
  Receive Date: 20100930
  Receipt Date: 20100924
  Transmission Date: 20110219
  Serious: Yes (Other)
  Sender: FDA-Public Use
  Company Number: GR-PFIZER INC-2010121505

PATIENT
  Age: 32 Year
  Sex: Male

DRUGS (2)
  1. CHAMPIX [Suspect]
     Indication: SMOKING CESSATION THERAPY
     Dosage: UNK
     Route: 048
     Dates: start: 20100101, end: 20100910
  2. ACETYLSALICYLIC ACID/PARACETAMOL [Concomitant]
     Dosage: UNK

REACTIONS (1)
  - TRANSAMINASES INCREASED [None]
